FAERS Safety Report 21206418 (Version 22)
Quarter: 2023Q4

REPORT INFORMATION
  Report Type: Spontaneous
  Country: IL (occurrence: IL)
  Receive Date: 20220812
  Receipt Date: 20231114
  Transmission Date: 20240110
  Serious: Yes (Death, Hospitalization, Other)
  Sender: FDA-Public Use
  Company Number: IL-PFIZER INC-2018166002

PATIENT
  Age: 68 Year
  Sex: Female

DRUGS (22)
  1. ELELYSO [Suspect]
     Active Substance: TALIGLUCERASE ALFA
     Indication: Gaucher^s disease
     Dosage: EVERY OTHER WEEK
     Dates: start: 20160301
  2. ELELYSO [Suspect]
     Active Substance: TALIGLUCERASE ALFA
     Dosage: 1200 UNITS PER INFUSION TWICE A WEEK
     Route: 042
  3. ELELYSO [Suspect]
     Active Substance: TALIGLUCERASE ALFA
     Dosage: TWICE A MONTH
     Route: 042
  4. ELELYSO [Suspect]
     Active Substance: TALIGLUCERASE ALFA
     Dosage: 2400 UNITS PER INFUSION FOR ABOUT HALF AN HOUR
     Route: 042
  5. ELELYSO [Suspect]
     Active Substance: TALIGLUCERASE ALFA
     Dosage: TWICE A MONTH
     Route: 042
  6. ELELYSO [Suspect]
     Active Substance: TALIGLUCERASE ALFA
     Dosage: TWICE A MONTH
     Route: 042
  7. ELELYSO [Suspect]
     Active Substance: TALIGLUCERASE ALFA
     Dosage: TWICE A MONTH
     Route: 042
  8. ELELYSO [Suspect]
     Active Substance: TALIGLUCERASE ALFA
     Dosage: TWICE A MONTH
     Route: 042
  9. ELELYSO [Suspect]
     Active Substance: TALIGLUCERASE ALFA
     Dosage: 12 VIALS, EVERY OTHER WEEK
     Route: 042
  10. ELELYSO [Suspect]
     Active Substance: TALIGLUCERASE ALFA
     Dosage: 12 VIALS PER TREATMENT
     Route: 042
  11. ELELYSO [Suspect]
     Active Substance: TALIGLUCERASE ALFA
     Dosage: 12 VIALS PER TREATMENT
     Route: 042
  12. ELELYSO [Suspect]
     Active Substance: TALIGLUCERASE ALFA
     Dosage: 12 VIALS
     Route: 042
  13. ELELYSO [Suspect]
     Active Substance: TALIGLUCERASE ALFA
     Dosage: 10 VIALS
     Route: 042
  14. ELELYSO [Suspect]
     Active Substance: TALIGLUCERASE ALFA
     Dosage: 12 VIALS
     Route: 042
  15. ELELYSO [Suspect]
     Active Substance: TALIGLUCERASE ALFA
     Dosage: TWICE A MONTH
     Route: 042
     Dates: start: 20221106
  16. ELELYSO [Suspect]
     Active Substance: TALIGLUCERASE ALFA
     Dosage: TWICE A MONTH/12VIALS /2WEEKS 2400IU
     Route: 042
  17. ELELYSO [Suspect]
     Active Substance: TALIGLUCERASE ALFA
     Dosage: UNK
     Route: 042
     Dates: start: 20230122
  18. ELELYSO [Suspect]
     Active Substance: TALIGLUCERASE ALFA
     Dosage: TWICE A MONTH/12VIALS /2WEEKS 2400IU
     Route: 042
  19. ELELYSO [Suspect]
     Active Substance: TALIGLUCERASE ALFA
     Dosage: TWICE A MONTH/12VIALS /2WEEKS 2400IU
     Route: 042
     Dates: start: 20230329, end: 20230329
  20. ELELYSO [Suspect]
     Active Substance: TALIGLUCERASE ALFA
     Dosage: TWICE A MONTH/12VIALS /2WEEKS 2400IU
     Route: 042
     Dates: start: 20230416
  21. ELELYSO [Suspect]
     Active Substance: TALIGLUCERASE ALFA
     Dosage: TWICE A MONTH/12VIALS /2WEEKS 2400IU
     Route: 042
     Dates: start: 20230918, end: 20230918
  22. ELELYSO [Suspect]
     Active Substance: TALIGLUCERASE ALFA
     Dosage: EOW
     Route: 042
     Dates: start: 20231016

REACTIONS (10)
  - Gastric cancer [Fatal]
  - General physical health deterioration [Fatal]
  - Weight decreased [Fatal]
  - Hip arthroplasty [Unknown]
  - Asthenia [Not Recovered/Not Resolved]
  - Pyrexia [Unknown]
  - Joint injury [Unknown]
  - Fall [Unknown]
  - Gait disturbance [Unknown]
  - Off label use [Unknown]
